FAERS Safety Report 4284843-3 (Version None)
Quarter: 2004Q1

REPORT INFORMATION
  Report Type: 
  Country: None (occurrence: None)
  Receive Date: 20040203
  Receipt Date: 20040203
  Transmission Date: 20041129
  Serious: No
  Sender: FDA-Public Use
  Company Number: None

PATIENT

DRUGS (7)
  1. ADENOSINE [Suspect]
     Dosage: 64 MG ONCE IV
     Route: 042
  2. ASPIRIN [Concomitant]
  3. LOVENOX [Concomitant]
  4. LOPRESSOR [Concomitant]
  5. NITROGLYCERIN [Concomitant]
  6. DARVOCET [Concomitant]
  7. ADVAIR DISKUS 100/50 [Concomitant]

REACTIONS (1)
  - INTUBATION [None]
